FAERS Safety Report 18273532 (Version 1)
Quarter: 2020Q3

REPORT INFORMATION
  Report Type: Spontaneous
  Country: US (occurrence: US)
  Receive Date: 20200916
  Receipt Date: 20200916
  Transmission Date: 20201103
  Serious: No
  Sender: FDA-Public Use
  Company Number: None

PATIENT
  Age: 81 Year
  Sex: Female

DRUGS (4)
  1. REPATHA [Suspect]
     Active Substance: EVOLOCUMAB
     Indication: HYPERLIPIDAEMIA
     Dates: start: 20200810, end: 20200901
  2. LIVALO 4MG [Concomitant]
  3. ZETIA [Concomitant]
     Active Substance: EZETIMIBE
  4. REPATHA [Suspect]
     Active Substance: EVOLOCUMAB
     Indication: ARTERIOSCLEROSIS
     Dates: start: 20200810, end: 20200901

REACTIONS (6)
  - Weight decreased [None]
  - Dyspnoea exertional [None]
  - Dizziness [None]
  - Arthralgia [None]
  - Feeling abnormal [None]
  - Joint stiffness [None]

NARRATIVE: CASE EVENT DATE: 20200815
